FAERS Safety Report 13084812 (Version 3)
Quarter: 2017Q1

REPORT INFORMATION
  Report Type: Spontaneous
  Country: CA (occurrence: CA)
  Receive Date: 20170104
  Receipt Date: 20170227
  Transmission Date: 20170428
  Serious: Yes (Other)
  Sender: FDA-Public Use
  Company Number: CA-PFIZER INC-2016604233

PATIENT
  Age: 70 Year
  Sex: Male
  Weight: 94 kg

DRUGS (29)
  1. IPRATROPIUM [Concomitant]
     Active Substance: IPRATROPIUM
     Dosage: 500 UG, EVERY 4 HRS
     Route: 048
     Dates: start: 20161228, end: 20170106
  2. DOBUTAMINE [Concomitant]
     Active Substance: DOBUTAMINE\DOBUTAMINE HYDROCHLORIDE
     Dosage: 250 MG, AS NEEDED
     Route: 042
     Dates: start: 20161220, end: 20161226
  3. NOREPINEPHRINE [Concomitant]
     Active Substance: NOREPINEPHRINE\NOREPINEPHRINE BITARTRATE
     Dosage: 8 MG, AS NEEDED
     Route: 042
     Dates: start: 20161219, end: 20161227
  4. ACETYLSALICYLIC ACID [Concomitant]
     Active Substance: ASPIRIN
     Dosage: 80 MG, 1X/DAY (WITH BREAKFAST)
     Route: 048
     Dates: start: 20161219, end: 20170103
  5. HYDROCORTISONE SODIUM SUCCINATE [Concomitant]
     Active Substance: HYDROCORTISONE SODIUM SUCCINATE
     Dosage: 100 MG, AS NEEDED
     Route: 042
     Dates: start: 20161227, end: 20161227
  6. TOBRAMYCIN SULFATE. [Concomitant]
     Active Substance: TOBRAMYCIN SULFATE
     Dosage: 2 DF, 2X/DAY (2 DROPS BOTH EYES)
     Route: 047
     Dates: start: 20161226, end: 20170110
  7. PANTOPRAZOLE [Concomitant]
     Active Substance: PANTOPRAZOLE SODIUM
     Dosage: 40 MG, 1X/DAY
     Route: 042
     Dates: start: 20161220, end: 20170103
  8. DEXMEDETOMIDINE. [Concomitant]
     Active Substance: DEXMEDETOMIDINE
     Dosage: 400 UG, AS NEEDED
     Route: 042
     Dates: start: 20161226, end: 20161227
  9. PROPOFOL. [Concomitant]
     Active Substance: PROPOFOL
     Dosage: 500 MG, AS NEEDED
     Route: 042
     Dates: start: 20161219, end: 20161227
  10. FENTANYL. [Concomitant]
     Active Substance: FENTANYL
     Dosage: 100 UG, AS NEEDED
     Route: 042
     Dates: start: 20161228, end: 20161228
  11. AMIODARONE [Concomitant]
     Active Substance: AMIODARONE
     Dosage: 150 UG, UNK
     Route: 042
     Dates: start: 20161222, end: 20161227
  12. VANCOMYCIN [Concomitant]
     Active Substance: VANCOMYCIN
     Dosage: 1 G, CYCLIC (EVERY 1 HOUR)
     Route: 042
     Dates: start: 20161222, end: 20161229
  13. LIPITOR [Concomitant]
     Active Substance: ATORVASTATIN CALCIUM
     Dosage: 80 MG, 1X/DAY (EVERY NIGHT)
     Route: 048
     Dates: start: 20161219, end: 20161228
  14. MIDAZOLAM [Concomitant]
     Active Substance: MIDAZOLAM HYDROCHLORIDE
     Dosage: 10 MG, AS NEEDED
     Route: 042
     Dates: start: 20161228, end: 20161228
  15. METOPROLOL. [Concomitant]
     Active Substance: METOPROLOL
     Dosage: 5 MG, AS NEEDED
     Route: 042
     Dates: start: 20161227, end: 20161227
  16. HEPARIN [Concomitant]
     Active Substance: HEPARIN SODIUM
     Dosage: 25000 UNIT D5W 250 ML, AS NEEDED
     Route: 042
     Dates: start: 20161225, end: 20170105
  17. CHLORHEXIDINE GLUCONATE. [Concomitant]
     Active Substance: CHLORHEXIDINE GLUCONATE
     Dosage: 15 ML, UNK
     Dates: start: 20161220, end: 20170106
  18. LACTULOSE. [Concomitant]
     Active Substance: LACTULOSE
     Dosage: 30 MG, 2X/DAY
     Route: 048
     Dates: start: 20161225, end: 20161230
  19. IPRATROPIUM [Concomitant]
     Active Substance: IPRATROPIUM
     Dosage: 500 UG, AS NEEDED
     Route: 048
     Dates: start: 20161222, end: 20161226
  20. SALBUTAMOL [Concomitant]
     Active Substance: ALBUTEROL
     Dosage: 5 MG, EVERY 4 HRS
     Route: 048
     Dates: start: 20161226, end: 20161228
  21. PRECEDEX [Suspect]
     Active Substance: DEXMEDETOMIDINE HYDROCHLORIDE
     Indication: CARDIAC ARREST
     Dosage: 0.2 MCG/KG/HR
     Route: 041
     Dates: start: 20161226, end: 20161228
  22. FUROSEMIDE. [Concomitant]
     Active Substance: FUROSEMIDE
     Dosage: 40 MG, 2X/DAY  (AT 08:00, 16:00)
     Route: 042
     Dates: start: 20161220, end: 20161229
  23. SEROQUEL [Concomitant]
     Active Substance: QUETIAPINE FUMARATE
     Dosage: 25 MG, 2X/DAY
     Route: 048
     Dates: start: 20161221, end: 20161227
  24. LACTULOSE. [Concomitant]
     Active Substance: LACTULOSE
     Dosage: UNK UNK, AS NEEDED
     Route: 048
     Dates: start: 20161219, end: 20161224
  25. ADENOSINE. [Concomitant]
     Active Substance: ADENOSINE
     Dosage: 6 MG, AS NEEDED
     Route: 042
     Dates: start: 20161228, end: 20161228
  26. PROPOFOL. [Concomitant]
     Active Substance: PROPOFOL
     Dosage: 200 MG, AS NEEDED
     Route: 042
     Dates: start: 20161228, end: 20161228
  27. METOPROLOL. [Concomitant]
     Active Substance: METOPROLOL
     Dosage: 25 MG, 2X/DAY
     Route: 048
     Dates: start: 20161228, end: 20161228
  28. IPRATROPIUM [Concomitant]
     Active Substance: IPRATROPIUM
     Dosage: 1000 UG, CYCLIC (EVERY 6 HOURS FOR 24 HOURS)
     Route: 048
     Dates: start: 20161227, end: 20161227
  29. PREDNISONE. [Concomitant]
     Active Substance: PREDNISONE
     Dosage: 50 MG, 1X/DAY  (WITH BREAKFAST)
     Route: 048
     Dates: start: 20161228, end: 20170101

REACTIONS (2)
  - Alanine aminotransferase increased [Recovered/Resolved]
  - Acute kidney injury [Recovered/Resolved]

NARRATIVE: CASE EVENT DATE: 20161228
